FAERS Safety Report 5479044-7 (Version None)
Quarter: 2007Q4

REPORT INFORMATION
  Report Type: 
  Country: None (occurrence: None)
  Receive Date: 20071002
  Receipt Date: 20070925
  Transmission Date: 20080405
  Serious: Yes (Life-Threatening, Hospitalization, Other)
  Sender: FDA-Public Use
  Company Number: TPA2007A01814

PATIENT
  Age: 54 Year
  Sex: Male
  Weight: 104.3273 kg

DRUGS (8)
  1. ROZEREM [Suspect]
     Indication: INSOMNIA
     Dosage: PER ORAL
     Route: 048
     Dates: start: 20070718, end: 20070724
  2. METHADONE HCL [Suspect]
     Dosage: 10 MG, 2 IN 1 D, PER ORAL
     Route: 048
  3. HYDROCODONE BITARTRATE [Suspect]
  4. CYMBALTA [Suspect]
     Indication: PAIN
     Dosage: 30 MG, QHS
  5. LORTAB [Suspect]
     Indication: PAIN
     Dosage: 10/500, Q12-24 HRS
  6. ALEVE [Concomitant]
  7. OMEGA 3 FISH OIL (FISH OIL) [Concomitant]
  8. DECADRON [Concomitant]

REACTIONS (6)
  - AMNESIA [None]
  - DRUG INTERACTION [None]
  - FEELING ABNORMAL [None]
  - IMPAIRED DRIVING ABILITY [None]
  - IMPRISONMENT [None]
  - LEGAL PROBLEM [None]
